FAERS Safety Report 5633070-3 (Version None)
Quarter: 2008Q1

REPORT INFORMATION
  Report Type: 
  Country: None (occurrence: None)
  Receive Date: 20080221
  Receipt Date: 20060227
  Transmission Date: 20080703
  Serious: Yes (Other)
  Sender: FDA-Public Use
  Company Number: AU-ASTRAZENECA-2006AP01393

PATIENT
  Age: 19970 Day
  Sex: Female
  Weight: 58 kg

DRUGS (6)
  1. SEROQUEL [Suspect]
     Indication: ANXIETY
     Route: 048
     Dates: start: 20050404, end: 20060224
  2. SEROQUEL [Suspect]
     Indication: DEPRESSION
     Route: 048
     Dates: start: 20050404, end: 20060224
  3. FLUVOXAMINE MALEATE [Concomitant]
     Dates: start: 20010801
  4. PREMARIN [Concomitant]
     Indication: HORMONE REPLACEMENT THERAPY
  5. PROVERA [Concomitant]
     Indication: HORMONE REPLACEMENT THERAPY
  6. BLACKMORES FISH OIL [Concomitant]
     Indication: ARTHRITIS

REACTIONS (1)
  - PLATELET COUNT DECREASED [None]
